FAERS Safety Report 16095209 (Version 1)
Quarter: 2019Q1

REPORT INFORMATION
  Report Type: Spontaneous
  Country: US (occurrence: US)
  Receive Date: 20190320
  Receipt Date: 20190320
  Transmission Date: 20190418
  Serious: No
  Sender: FDA-Public Use
  Company Number: US-HORIZON-PRE-0129-2019

PATIENT
  Age: 84 Year
  Sex: Male

DRUGS (2)
  1. PREDNISONE. [Suspect]
     Active Substance: PREDNISONE
     Indication: PROCEDURAL PAIN
     Dates: start: 2018
  2. OZURDEX [Suspect]
     Active Substance: DEXAMETHASONE
     Indication: MACULAR OEDEMA
     Dosage: 0.7 MG INTRAOCULAR SINGLE
     Route: 031
     Dates: start: 20171220, end: 20180131

REACTIONS (2)
  - Intraocular pressure increased [Unknown]
  - Off label use [Unknown]
